FAERS Safety Report 12236044 (Version 2)
Quarter: 2016Q2

REPORT INFORMATION
  Report Type: Report from Study
  Country: CO (occurrence: CO)
  Receive Date: 20160404
  Receipt Date: 20160419
  Transmission Date: 20160815
  Serious: Yes (Other)
  Sender: FDA-Public Use
  Company Number: PHHY2015CO141131

PATIENT
  Age: 70 Year
  Sex: Male
  Weight: 57 kg

DRUGS (1)
  1. TASIGNA [Suspect]
     Active Substance: NILOTINIB
     Indication: CHRONIC MYELOID LEUKAEMIA
     Dosage: 2 DF, Q12H
     Route: 048
     Dates: start: 20140710

REACTIONS (6)
  - Second primary malignancy [Unknown]
  - Scab [Not Recovered/Not Resolved]
  - White blood cell count increased [Unknown]
  - Ear neoplasm [Unknown]
  - Skin lesion [Unknown]
  - Ear injury [Not Recovered/Not Resolved]

NARRATIVE: CASE EVENT DATE: 20150626
